FAERS Safety Report 7702732-6 (Version None)
Quarter: 2011Q3

REPORT INFORMATION
  Report Type: 
  Country: None (occurrence: None)
  Receive Date: 20110823
  Receipt Date: 20100225
  Transmission Date: 20111222
  Serious: No
  Sender: FDA-Public Use
  Company Number: US-BAYER-201015008NA

PATIENT
  Age: 49 Year
  Sex: Female

DRUGS (3)
  1. MIRENA [Suspect]
     Dosage: 20 ?G/D, CONT
     Route: 015
     Dates: start: 20100215
  2. MIRENA [Suspect]
     Indication: CONTRACEPTION
     Dosage: 20 ?G/D, CONT
     Route: 015
     Dates: start: 20040419, end: 20090623
  3. MIRENA [Suspect]
     Indication: MENORRHAGIA
     Dosage: 20 ?G/D, CONT
     Route: 015
     Dates: start: 20090707, end: 20100215

REACTIONS (4)
  - NO ADVERSE EVENT [None]
  - GENITAL HAEMORRHAGE [None]
  - HYPOMENORRHOEA [None]
  - MENORRHAGIA [None]
